FAERS Safety Report 16564407 (Version 1)
Quarter: 2019Q3

REPORT INFORMATION
  Report Type: Spontaneous
  Country: US (occurrence: US)
  Receive Date: 20190530
  Receipt Date: 20190530
  Transmission Date: 20191004
  Serious: No
  Sender: FDA-Public Use
  Company Number: None

PATIENT
  Age: 59 Year
  Sex: Female

DRUGS (1)
  1. ZARXIO [Suspect]
     Active Substance: FILGRASTIM-SNDZ
     Dosage: OTHER STRENGTH 480MCG/0.8ML PFS INJ
     Dates: start: 20190420

REACTIONS (2)
  - Decreased appetite [None]
  - Back pain [None]

NARRATIVE: CASE EVENT DATE: 20190423
